FAERS Safety Report 24368471 (Version 1)
Quarter: 2024Q3

REPORT INFORMATION
  Report Type: Spontaneous
  Country: GB (occurrence: GB)
  Receive Date: 20240926
  Receipt Date: 20240926
  Transmission Date: 20241016
  Serious: Yes (Other)
  Sender: TAKEDA
  Company Number: GB-TAKEDA-2024TUS093152

PATIENT
  Age: 33 Year
  Sex: Female

DRUGS (1)
  1. ENTYVIO [Suspect]
     Active Substance: VEDOLIZUMAB
     Indication: Colitis ulcerative
     Dosage: UNK
     Route: 065

REACTIONS (13)
  - Crohn^s disease [Unknown]
  - Rectal dysplasia [Unknown]
  - Pyoderma gangrenosum [Unknown]
  - Colitis ulcerative [Unknown]
  - Breast cancer female [Unknown]
  - Haemoptysis [Unknown]
  - Abdominal pain upper [Recovered/Resolved]
  - Osteopenia [Unknown]
  - Iron deficiency anaemia [Unknown]
  - Pulmonary mass [Recovered/Resolved]
  - Rectal polyp [Unknown]
  - Chest pain [Unknown]
  - Bronchitis [Recovered/Resolved]

NARRATIVE: CASE EVENT DATE: 20230301
